FAERS Safety Report 4681907-7 (Version None)
Quarter: 2005Q2

REPORT INFORMATION
  Report Type: 
  Country: None (occurrence: None)
  Receive Date: 20050602
  Receipt Date: 20050516
  Transmission Date: 20051028
  Serious: Yes (Death, Other)
  Sender: FDA-Public Use
  Company Number: JP_050506483

PATIENT
  Age: 70 Year
  Sex: Male
  Weight: 61 kg

DRUGS (5)
  1. GEMZAR [Suspect]
     Indication: LUNG ADENOCARCINOMA
     Dosage: 1500 MG OTHER
     Route: 050
     Dates: start: 20050418, end: 20050418
  2. KYTRIL FOR INFUSION (GRANISETRON HYDROCHLORIDE) [Concomitant]
  3. MAXIPIME [Concomitant]
  4. MUCODYNE (CARBOCISTEINE) [Concomitant]
  5. OPSO (MORPHINE HYDROCHLORIDE) [Concomitant]

REACTIONS (5)
  - CARDIOMEGALY [None]
  - DISSEMINATED INTRAVASCULAR COAGULATION [None]
  - LUNG DISORDER [None]
  - PO2 DECREASED [None]
  - PULMONARY CONGESTION [None]
